FAERS Safety Report 14253773 (Version 1)
Quarter: 2017Q4

REPORT INFORMATION
  Report Type: Spontaneous
  Country: SK (occurrence: SK)
  Receive Date: 20171206
  Receipt Date: 20171206
  Transmission Date: 20180321
  Serious: Yes (Other)
  Sender: FDA-Public Use
  Company Number: SK-ARIAD-2017SK008235

PATIENT
  Age: 55 Year
  Sex: Female
  Weight: 65 kg

DRUGS (6)
  1. AGEN [Concomitant]
     Indication: PRODUCT USED FOR UNKNOWN INDICATION
     Dosage: UNK
     Route: 065
  2. PONATINIB [Suspect]
     Active Substance: PONATINIB
     Dosage: 30 MG, QD
     Route: 048
     Dates: start: 201611
  3. PONATINIB [Suspect]
     Active Substance: PONATINIB
     Dosage: 45 MG, QOD
     Route: 048
     Dates: start: 201608, end: 201611
  4. NEBILET [Concomitant]
     Active Substance: NEBIVOLOL
     Indication: PRODUCT USED FOR UNKNOWN INDICATION
     Dosage: UNK
     Route: 065
  5. PONATINIB [Suspect]
     Active Substance: PONATINIB
     Indication: CHRONIC MYELOID LEUKAEMIA RECURRENT
     Dosage: 45 MG, QD
     Route: 048
     Dates: start: 20160802, end: 201608
  6. ACETYLSALICYLIC ACID [Concomitant]
     Active Substance: ASPIRIN
     Dosage: UNK
     Route: 065

REACTIONS (6)
  - Hepatomegaly [Recovered/Resolved]
  - Incorrect dose administered [Unknown]
  - C-reactive protein increased [Not Recovered/Not Resolved]
  - Hepatic enzyme increased [Recovered/Resolved]
  - Hypertension [Recovered/Resolved]
  - Influenza like illness [Recovered/Resolved]

NARRATIVE: CASE EVENT DATE: 20160808
